FAERS Safety Report 7088849-0 (Version None)
Quarter: 2010Q4

REPORT INFORMATION
  Report Type: 
  Country: None (occurrence: None)
  Receive Date: 20101108
  Receipt Date: 20101101
  Transmission Date: 20110411
  Serious: Yes (Disabling, Other)
  Sender: FDA-Public Use
  Company Number: US-ABBOTT-10P-163-0682532-00

PATIENT
  Sex: Male
  Weight: 104.42 kg

DRUGS (6)
  1. HUMIRA [Suspect]
     Indication: PSORIASIS
     Dates: start: 20100101, end: 20100601
  2. TACLONEX [Concomitant]
     Indication: PSORIASIS
     Dosage: APPLY AS NEEDED
  3. BETAMETHASONE [Concomitant]
     Indication: PSORIASIS
  4. OXYCODONE [Concomitant]
     Indication: PRODUCT USED FOR UNKNOWN INDICATION
     Dosage: AS NEEDED
     Dates: start: 20100501
  5. AMITRIPTYLINE HCL [Concomitant]
     Indication: DEPRESSION
     Dates: start: 20100501
  6. GABAPENTIN [Concomitant]
     Indication: PRODUCT USED FOR UNKNOWN INDICATION
     Dates: start: 20100501

REACTIONS (3)
  - NERVE INJURY [None]
  - PERONEAL NERVE PALSY [None]
  - PSORIASIS [None]
